FAERS Safety Report 18879503 (Version 1)
Quarter: 2021Q1

REPORT INFORMATION
  Report Type: Spontaneous
  Country: US (occurrence: US)
  Receive Date: 20210211
  Receipt Date: 20210211
  Transmission Date: 20210420
  Serious: No
  Sender: FDA-Public Use
  Company Number: None

PATIENT
  Age: 26 Year
  Sex: Male
  Weight: 47.7 kg

DRUGS (1)
  1. OMNIPAQUE [Suspect]
     Active Substance: IOHEXOL
     Route: 040

REACTIONS (5)
  - Contrast media reaction [None]
  - Vomiting [None]
  - Fatigue [None]
  - Syncope [None]
  - Nausea [None]

NARRATIVE: CASE EVENT DATE: 20210210
